FAERS Safety Report 16794514 (Version 7)
Quarter: 2019Q4

REPORT INFORMATION
  Report Type: Spontaneous
  Country: JP (occurrence: JP)
  Receive Date: 20190911
  Receipt Date: 20191212
  Transmission Date: 20200122
  Serious: Yes (Death, Life-Threatening, Hospitalization, Other)
  Sender: FDA-Public Use
  Company Number: JP-009507513-1909JPN000863J

PATIENT
  Age: 63 Year
  Sex: Female
  Weight: 33 kg

DRUGS (16)
  1. EDIROL [Concomitant]
     Active Substance: ELDECALCITOL
     Dosage: UNK
     Route: 048
  2. PREDONINE [Concomitant]
     Active Substance: PREDNISOLONE
     Dosage: 2 MILLIGRAM
     Route: 048
     Dates: start: 20190709, end: 20190731
  3. PROGRAF [Concomitant]
     Active Substance: TACROLIMUS
     Dosage: 1 MILLIGRAM
     Route: 048
     Dates: start: 20190709
  4. PARIET [Concomitant]
     Active Substance: RABEPRAZOLE SODIUM
     Dosage: UNK
     Route: 048
  5. DICLOFENAC SODIUM. [Concomitant]
     Active Substance: DICLOFENAC SODIUM
     Dosage: UNK
     Route: 065
  6. TRAMCET [Concomitant]
     Active Substance: ACETAMINOPHEN\TRAMADOL
     Dosage: UNK
     Route: 048
  7. TARIVID FOR OTIC USE [Concomitant]
     Dosage: UNK
     Route: 065
  8. CALONAL [Concomitant]
     Active Substance: ACETAMINOPHEN
     Dosage: UNK
     Route: 048
  9. KEYTRUDA [Suspect]
     Active Substance: PEMBROLIZUMAB
     Indication: NON-SMALL CELL LUNG CANCER
     Dosage: 200 MILLIGRAM, Q3W
     Route: 041
     Dates: start: 20190801, end: 20190801
  10. CARBOPLATIN. [Suspect]
     Active Substance: CARBOPLATIN
     Indication: NON-SMALL CELL LUNG CANCER
     Dosage: 470 MILLIGRAM
     Route: 041
     Dates: start: 20190801
  11. FOLIAMIN [Concomitant]
     Active Substance: FOLIC ACID
     Dosage: UNK
     Route: 048
  12. ALIMTA [Suspect]
     Active Substance: PEMETREXED DISODIUM
     Indication: NON-SMALL CELL LUNG CANCER
     Dosage: 640 MILLIGRAM
     Route: 041
     Dates: start: 20190801
  13. REBAMIPIDE [Concomitant]
     Active Substance: REBAMIPIDE
     Dosage: UNK
     Route: 048
  14. MARZULENE ES [Concomitant]
     Dosage: UNK
     Route: 048
  15. CELECOX [Concomitant]
     Active Substance: CELECOXIB
     Dosage: UNK
     Route: 048
  16. RHEUMATREX [Concomitant]
     Active Substance: METHOTREXATE SODIUM
     Dosage: 6 MILLIGRAM
     Route: 048
     Dates: start: 20190709, end: 20190725

REACTIONS (6)
  - Enterocolitis [Unknown]
  - Nausea [Recovering/Resolving]
  - Neutrophil count decreased [Recovering/Resolving]
  - Malignant neoplasm progression [Fatal]
  - Pancytopenia [Recovering/Resolving]
  - Stomatitis [Recovered/Resolved]

NARRATIVE: CASE EVENT DATE: 2019
